FAERS Safety Report 9143795 (Version 2)
Quarter: 2013Q2

REPORT INFORMATION
  Report Type: Report from Study
  Country: RU (occurrence: RU)
  Receive Date: 20130306
  Receipt Date: 20130527
  Transmission Date: 20140414
  Serious: Yes (Hospitalization, Other)
  Sender: FDA-Public Use
  Company Number: RU-BRISTOL-MYERS SQUIBB COMPANY-17406505

PATIENT
  Age: 83 Year
  Sex: Female

DRUGS (1)
  1. DASATINIB [Suspect]
     Indication: CHRONIC MYELOID LEUKAEMIA
     Dosage: SWITCHED TO TASINGA
     Route: 048
     Dates: start: 201205, end: 20130219

REACTIONS (3)
  - Intestinal obstruction [Unknown]
  - Colitis [Unknown]
  - Constipation [Not Recovered/Not Resolved]
